FAERS Safety Report 4588177-9 (Version None)
Quarter: 2005Q1

REPORT INFORMATION
  Report Type: 
  Country: None (occurrence: None)
  Receive Date: 20050221
  Receipt Date: 20040120
  Transmission Date: 20050727
  Serious: Yes (Life-Threatening)
  Sender: FDA-Public Use
  Company Number: JP-GLAXOSMITHKLINE-B0320412A

PATIENT
  Age: 2 Year
  Sex: Male
  Weight: 12 kg

DRUGS (9)
  1. ALKERAN [Suspect]
     Indication: HEPATOBLASTOMA
     Dosage: 44MG PER DAY
     Route: 042
     Dates: start: 20030120, end: 20030121
  2. CISPLATIN [Suspect]
     Indication: HEPATOBLASTOMA
     Route: 042
     Dates: start: 20020426, end: 20020720
  3. IFOSFAMIDE [Suspect]
     Indication: HEPATOBLASTOMA
     Dosage: 1.2G PER DAY
     Route: 042
     Dates: start: 20020816, end: 20020925
  4. AMIKACIN SULFATE [Suspect]
     Indication: BACTERIAL INFECTION
     Dosage: 50MG TWICE PER DAY
     Route: 042
     Dates: start: 20020907, end: 20021009
  5. CARBOPLATIN [Suspect]
     Indication: HEPATOBLASTOMA
     Route: 042
     Dates: start: 20020819, end: 20030119
  6. ETOPOSIDE [Suspect]
     Indication: HEPATOBLASTOMA
     Dosage: 98MG PER DAY
     Route: 042
     Dates: start: 20030117, end: 20030120
  7. CONCENTRATED RED BLOOD CELLS [Concomitant]
     Route: 065
  8. PLATELETS CONCENTRATE [Concomitant]
     Route: 065
  9. LENOGRASTIM [Concomitant]
     Route: 065

REACTIONS (7)
  - ALANINE AMINOTRANSFERASE INCREASED [None]
  - ASPARTATE AMINOTRANSFERASE INCREASED [None]
  - BONE MARROW DEPRESSION [None]
  - FANCONI SYNDROME ACQUIRED [None]
  - GASTROINTESTINAL MUCOSAL DISORDER [None]
  - ILEUS [None]
  - LIVER DISORDER [None]
